FAERS Safety Report 5341629-6 (Version None)
Quarter: 2007Q2

REPORT INFORMATION
  Report Type: 
  Country: None (occurrence: None)
  Receive Date: 20070601
  Receipt Date: 20070524
  Transmission Date: 20071010
  Serious: Yes (Hospitalization, Other)
  Sender: FDA-Public Use
  Company Number: US-BAYER-200711611BCC

PATIENT
  Sex: Male

DRUGS (2)
  1. ALKA SELTZER [Suspect]
     Indication: DRUG USE FOR UNKNOWN INDICATION
     Route: 048
     Dates: start: 20070511
  2. EXCEDRIN [Suspect]
     Indication: HEADACHE
     Route: 048
     Dates: start: 20070510

REACTIONS (2)
  - CONVULSION [None]
  - VISION BLURRED [None]
